FAERS Safety Report 4642089-0 (Version None)
Quarter: 2005Q2

REPORT INFORMATION
  Report Type: 
  Country: None (occurrence: None)
  Receive Date: 20050421
  Receipt Date: 20050421
  Transmission Date: 20051028
  Serious: Yes (Hospitalization)
  Sender: FDA-Public Use
  Company Number: None

PATIENT
  Sex: Male
  Weight: 2.9 kg

DRUGS (2)
  1. SYNAGIS [Suspect]
     Indication: PROPHYLAXIS
     Dosage: 43 MG IM X 1 AT 1340
     Route: 030
     Dates: start: 20050413
  2. SYNAGIS [Suspect]
     Indication: RESPIRATORY SYNCYTIAL VIRUS INFECTION
     Dosage: 43 MG IM X 1 AT 1340
     Route: 030
     Dates: start: 20050413

REACTIONS (1)
  - OXYGEN CONSUMPTION INCREASED [None]
